FAERS Safety Report 8890883 (Version 1)
Quarter: 2012Q4

REPORT INFORMATION
  Report Type: 
  Country: US (occurrence: US)
  Receive Date: 20121107
  Receipt Date: 20121107
  Transmission Date: 20130627
  Serious: Yes (Death)
  Sender: FDA-Public Use
  Company Number: US-ROCHE-1130178

PATIENT
  Sex: Male

DRUGS (4)
  1. RITUXAN [Suspect]
     Indication: TRACHEAL CANCER
     Route: 065
     Dates: start: 20120323
  2. RITUXAN [Suspect]
     Indication: MALIGNANT LYMPHOID NEOPLASM
     Route: 065
     Dates: start: 20010413
  3. RITUXAN [Suspect]
     Route: 065
     Dates: start: 20010504
  4. RITUXAN [Suspect]
     Route: 065
     Dates: start: 20010525

REACTIONS (1)
  - Death [Fatal]
